FAERS Safety Report 5672957-2 (Version None)
Quarter: 2008Q1

REPORT INFORMATION
  Report Type: 
  Country: None (occurrence: None)
  Receive Date: 20080317
  Receipt Date: 20080228
  Transmission Date: 20080703
  Serious: Yes (Hospitalization)
  Sender: FDA-Public Use
  Company Number: DSA_31580_2008

PATIENT
  Age: 66 Year
  Sex: Female

DRUGS (5)
  1. ENALAPRIL MALEATE [Suspect]
     Indication: DRUG USE FOR UNKNOWN INDICATION
     Dosage: (DF)
  2. METFORMIN HCL [Suspect]
     Indication: DIABETES MELLITUS
     Dosage: (DF)
  3. RISEDRONATE SODIUM [Suspect]
     Indication: OSTEOPOROSIS
     Dosage: (DF)
  4. CENTAUREA ASPERA L [Suspect]
     Indication: HYPOGLYCAEMIA
     Dosage: (DF)
  5. COUTAREA LATIFLORA DC [Suspect]
     Indication: HYPOGLYCAEMIA
     Dosage: (DF)

REACTIONS (12)
  - ANTINUCLEAR ANTIBODY [None]
  - AUTOIMMUNE HEPATITIS [None]
  - CHRONIC HEPATITIS [None]
  - DISCOMFORT [None]
  - FATIGUE [None]
  - FIBROSIS [None]
  - HEPATIC CIRRHOSIS [None]
  - HEPATIC NECROSIS [None]
  - LYMPHOCYTIC INFILTRATION [None]
  - SMOOTH MUSCLE ANTIBODY POSITIVE [None]
  - TUMOUR MARKER INCREASED [None]
  - WEIGHT DECREASED [None]
